FAERS Safety Report 11074921 (Version 1)
Quarter: 2015Q2

REPORT INFORMATION
  Report Type: Spontaneous
  Country: US (occurrence: None)
  Receive Date: 20150428
  Receipt Date: 20150428
  Transmission Date: 20150821
  Serious: Yes (Disabling)
  Sender: FDA-Public Use
  Company Number: None

PATIENT
  Age: 39 Year
  Sex: Male
  Weight: 83.92 kg

DRUGS (3)
  1. ED PILLS [Concomitant]
  2. FINASTERIDE. [Suspect]
     Active Substance: FINASTERIDE
     Indication: ALOPECIA
     Route: 048
  3. CONCERTA [Concomitant]
     Active Substance: METHYLPHENIDATE HYDROCHLORIDE

REACTIONS (10)
  - Depressed level of consciousness [None]
  - Head discomfort [None]
  - Blood testosterone decreased [None]
  - Loss of employment [None]
  - Amnesia [None]
  - Unevaluable event [None]
  - Disturbance in attention [None]
  - Suicidal ideation [None]
  - Erectile dysfunction [None]
  - Job dissatisfaction [None]
